FAERS Safety Report 9714540 (Version 2)
Quarter: 2013Q4

REPORT INFORMATION
  Report Type: Spontaneous
  Country: US (occurrence: US)
  Receive Date: 20131126
  Receipt Date: 20131126
  Transmission Date: 20140711
  Serious: Yes (Hospitalization)
  Sender: FDA-Public Use
  Company Number: US-CUBIST PHARMACEUTICAL, INC.-2013CBST001110

PATIENT
  Sex: 0

DRUGS (2)
  1. CUBICIN [Suspect]
     Indication: ENTEROCOCCAL INFECTION
     Dosage: UNK UNK, UNK
     Route: 065
  2. CUBICIN [Suspect]
     Indication: OFF LABEL USE

REACTIONS (2)
  - Enterococcal bacteraemia [Unknown]
  - Drug ineffective for unapproved indication [Unknown]
